FAERS Safety Report 20222994 (Version 1)
Quarter: 2021Q4

REPORT INFORMATION
  Report Type: Spontaneous
  Country: CN (occurrence: None)
  Receive Date: 20211223
  Receipt Date: 20211223
  Transmission Date: 20220303
  Serious: Yes (Other)
  Sender: FDA-Public Use
  Company Number: 2021A882410

PATIENT
  Age: 25568 Day
  Sex: Female
  Weight: 52 kg

DRUGS (1)
  1. TICAGRELOR [Suspect]
     Active Substance: TICAGRELOR
     Indication: Myocardial infarction
     Route: 048
     Dates: start: 20211205, end: 20211212

REACTIONS (1)
  - Coagulation time prolonged [Unknown]

NARRATIVE: CASE EVENT DATE: 20211212
